FAERS Safety Report 17565793 (Version 3)
Quarter: 2020Q3

REPORT INFORMATION
  Report Type: Spontaneous
  Country: DE (occurrence: DE)
  Receive Date: 20200320
  Receipt Date: 20200723
  Transmission Date: 20201102
  Serious: Yes (Hospitalization, Other)
  Sender: FDA-Public Use
  Company Number: DE-AMGEN-DEUSP2020044314

PATIENT
  Age: 24 Year
  Sex: Female
  Weight: 50 kg

DRUGS (2)
  1. ENBREL [Suspect]
     Active Substance: ETANERCEPT
     Indication: JUVENILE IDIOPATHIC ARTHRITIS
     Dosage: 50 MG, INTERVALS WERE PROLONGED
     Route: 058
     Dates: start: 201204, end: 201907
  2. ENBREL [Suspect]
     Active Substance: ETANERCEPT
     Dosage: 50 MG, INTERVALS WERE PROLONGED
     Route: 058
     Dates: end: 201907

REACTIONS (4)
  - Rheumatic disorder [Unknown]
  - Superficial spreading melanoma stage unspecified [Recovered/Resolved]
  - Off label use [Unknown]
  - Platelet count increased [Unknown]

NARRATIVE: CASE EVENT DATE: 20190823
